FAERS Safety Report 4354839-1 (Version None)
Quarter: 2004Q2

REPORT INFORMATION
  Report Type: 
  Country: None (occurrence: None)
  Receive Date: 20040507
  Receipt Date: 20040112
  Transmission Date: 20050107
  Serious: Yes (Hospitalization)
  Sender: FDA-Public Use
  Company Number: DK-GLAXOSMITHKLINE-B0312098B

PATIENT
  Age: 63 Year
  Sex: Male

DRUGS (2)
  1. SALMETEROL [Suspect]
     Indication: CHRONIC OBSTRUCTIVE AIRWAYS DISEASE
     Dosage: 50MCG TWICE PER DAY
     Route: 055
     Dates: start: 20020307, end: 20031224
  2. MAREVAN [Concomitant]
     Indication: THROMBOSIS PROPHYLAXIS
     Dosage: 2.5MG PER DAY
     Route: 048
     Dates: end: 20031111

REACTIONS (5)
  - ABDOMINAL DISCOMFORT [None]
  - DUODENAL ULCER [None]
  - GASTRIC ULCER [None]
  - HAEMATEMESIS [None]
  - NEOPLASM MALIGNANT [None]
